FAERS Safety Report 25245564 (Version 1)
Quarter: 2025Q2

REPORT INFORMATION
  Report Type: Spontaneous
  Country: US (occurrence: None)
  Receive Date: 20250425
  Receipt Date: 20250425
  Transmission Date: 20250716
  Serious: No
  Sender: FDA-CTU
  Company Number: None

PATIENT
  Age: 77 Year
  Sex: Male

DRUGS (1)
  1. VALCHLOR [Suspect]
     Active Substance: MECHLORETHAMINE
     Indication: Cutaneous T-cell lymphoma
     Dosage: 0.016MG QD TOPICAL
     Route: 061
     Dates: start: 20230412, end: 20250311

REACTIONS (2)
  - Drug ineffective [None]
  - Drug intolerance [None]

NARRATIVE: CASE EVENT DATE: 20250311
